FAERS Safety Report 4715161-4 (Version None)
Quarter: 2005Q3

REPORT INFORMATION
  Report Type: 
  Country: None (occurrence: None)
  Receive Date: 20050715
  Receipt Date: 20050707
  Transmission Date: 20060218
  Serious: Yes (Hospitalization)
  Sender: FDA-Public Use
  Company Number: FLUV00305001940

PATIENT
  Age: 29 Year
  Sex: Male
  Weight: 55 kg

DRUGS (3)
  1. PAXIL [Suspect]
     Indication: PARANOIA
     Dosage: 10MG PER DAY
     Route: 048
     Dates: start: 20040130, end: 20040130
  2. DEPROMEL [Suspect]
     Indication: PARANOIA
     Route: 065
  3. BROMAZEPAM [Concomitant]
     Indication: ILL-DEFINED DISORDER
     Dates: start: 20031216, end: 20040404

REACTIONS (7)
  - AGGRESSION [None]
  - DIARRHOEA [None]
  - HALLUCINATION, AUDITORY [None]
  - HEADACHE [None]
  - NAUSEA [None]
  - PERSECUTORY DELUSION [None]
  - SCHIZOPHRENIA [None]
